FAERS Safety Report 8376641-6 (Version None)
Quarter: 2012Q2

REPORT INFORMATION
  Report Type: 
  Country: None (occurrence: None)
  Receive Date: 20120522
  Receipt Date: 20120516
  Transmission Date: 20120825
  Serious: Yes (Death, Other)
  Sender: FDA-Public Use
  Company Number: PHHY2012JP032415

PATIENT
  Age: 52 Year
  Sex: Female

DRUGS (21)
  1. CYCLOPHOSPHAMIDE [Concomitant]
     Dosage: 25 MG/KG, UNK
  2. PENTAMIDINE ISETHIONATE [Concomitant]
     Indication: INFECTION PROPHYLAXIS
     Dosage: UNK UKN, UNK
  3. ACYCLOVIR [Concomitant]
     Indication: INFECTION PROPHYLAXIS
     Dosage: 500 MG, UNK
     Route: 048
  4. MOXIFLOXACIN [Concomitant]
     Dosage: UNK UKN, UNK
  5. NEORAL [Suspect]
     Dosage: 130 MG, DAILY
     Route: 048
     Dates: start: 20090114, end: 20090502
  6. THYMOGLOBULIN [Suspect]
     Dosage: 2.5 MG/KG, PER DAY
     Route: 042
  7. RED BLOOD CELLS [Concomitant]
     Dosage: UNK UKN, UNK
  8. IMMUNE GLOBULIN (HUMAN) [Suspect]
     Dosage: UNK UKN, UNK
  9. ATG-FRESENIUS [Suspect]
     Dosage: UNK UKN, UNK
  10. FLUDARABINE PHOSPHATE [Concomitant]
     Dosage: 30 MG/M2, PER DAY
  11. METHOTREXATE [Concomitant]
     Dosage: 7 MG/M2, UNK
  12. ACYCLOVIR [Concomitant]
     Dosage: 1000 MG, UNK
     Route: 048
  13. METHOTREXATE [Concomitant]
     Indication: PROPHYLAXIS AGAINST GRAFT VERSUS HOST DISEASE
     Dosage: 10 MG/M2, UNK
  14. LEVOFLOXACIN [Concomitant]
     Indication: INFECTION PROPHYLAXIS
     Dosage: UNK UKN, UNK
  15. THYMOGLOBULIN [Suspect]
     Dosage: 110 MG DAILY
     Route: 042
     Dates: start: 20090109, end: 20090112
  16. FLUCONAZOLE [Concomitant]
     Indication: INFECTION PROPHYLAXIS
     Dosage: UNK UKN, UNK
  17. NEORAL [Suspect]
     Indication: BONE MARROW TRANSPLANT
     Dosage: 3 MG/KG, PER DAY
  18. ACYCLOVIR [Concomitant]
     Dosage: 200 MG, UNK
     Route: 048
  19. FILGRASTIM [Concomitant]
     Dosage: 300 UG/ BODY/DAY
     Route: 042
  20. METENOLONE ACETATE [Suspect]
     Dosage: UNK UKN, UNK
  21. PLATELETS [Concomitant]
     Dosage: UNK UKN, UNK

REACTIONS (17)
  - HEPATIC FAILURE [None]
  - ACUTE GRAFT VERSUS HOST DISEASE IN SKIN [None]
  - HEPATIC ENCEPHALOPATHY [None]
  - FATIGUE [None]
  - PANCYTOPENIA [None]
  - PELIOSIS HEPATIS [None]
  - HEPATITIS B [None]
  - PYREXIA [None]
  - PHARYNGEAL OEDEMA [None]
  - HEPATIC FUNCTION ABNORMAL [None]
  - DRUG INEFFECTIVE [None]
  - CYTOMEGALOVIRUS INFECTION [None]
  - HERPES SIMPLEX [None]
  - HERPES ZOSTER [None]
  - EPSTEIN-BARR VIRUS INFECTION [None]
  - WHITE BLOOD CELL COUNT DECREASED [None]
  - OROPHARYNGEAL PAIN [None]
